FAERS Safety Report 8437145-5 (Version None)
Quarter: 2012Q2

REPORT INFORMATION
  Report Type: 
  Country: None (occurrence: None)
  Receive Date: 20120614
  Receipt Date: 20120411
  Transmission Date: 20120825
  Serious: No
  Sender: FDA-Public Use
  Company Number: US-AMGEN-USASP2012022806

PATIENT
  Age: 82 Year
  Sex: Female

DRUGS (14)
  1. CALCIUM [Concomitant]
  2. ASPIRIN [Concomitant]
  3. COSOPT [Concomitant]
  4. PREDNISONE TAB [Concomitant]
  5. TRIMETHOPRIM [Concomitant]
  6. PROLIA [Suspect]
     Indication: OSTEOPOROSIS POSTMENOPAUSAL
     Dosage: 60 MG, Q6MO
     Dates: start: 20120216
  7. ATENOLOL [Concomitant]
  8. TRAVATAN [Concomitant]
  9. VITAMIN C                          /00008001/ [Concomitant]
  10. VITAMIN B-12 [Concomitant]
  11. FISH OIL [Concomitant]
  12. FLAXSEED OIL [Concomitant]
  13. PROTONIX [Concomitant]
  14. VITAMIN D [Concomitant]

REACTIONS (2)
  - TOOTH DISORDER [None]
  - DIVERTICULITIS [None]
